FAERS Safety Report 12510851 (Version 1)
Quarter: 2016Q2

REPORT INFORMATION
  Report Type: Spontaneous
  Country: US (occurrence: US)
  Receive Date: 20160629
  Receipt Date: 20160629
  Transmission Date: 20160815
  Serious: No
  Sender: FDA-Public Use
  Company Number: US-BAYER-2016-119728

PATIENT
  Age: 45 Year
  Sex: Female
  Weight: 52.15 kg

DRUGS (2)
  1. CLARITIN REDITABS [Suspect]
     Active Substance: LORATADINE
     Indication: SEASONAL ALLERGY
     Dosage: EVERY 6 HOURS
     Route: 048
     Dates: start: 20160609, end: 20160614
  2. VITAMIN C [Concomitant]
     Active Substance: ASCORBIC ACID
     Dosage: UNK
     Route: 048

REACTIONS (4)
  - Drug ineffective [None]
  - Drug effect incomplete [None]
  - Ocular discomfort [None]
  - Product use issue [None]
